FAERS Safety Report 6633994-4 (Version None)
Quarter: 2010Q1

REPORT INFORMATION
  Report Type: 
  Country: None (occurrence: None)
  Receive Date: 20100315
  Receipt Date: 20100302
  Transmission Date: 20100710
  Serious: Yes (Other)
  Sender: FDA-Public Use
  Company Number: PHHY2010DE12990

PATIENT
  Sex: Female

DRUGS (3)
  1. LEPONEX [Suspect]
     Route: 048
  2. ZELDOX [Concomitant]
     Dosage: 100 MG/DAY
     Route: 048
  3. ANAFRANIL [Concomitant]
     Dosage: 25-37.5 MG/DAY
     Route: 048

REACTIONS (1)
  - DEVICE FAILURE [None]
